FAERS Safety Report 7819441-5 (Version None)
Quarter: 2011Q4

REPORT INFORMATION
  Report Type: 
  Country: None (occurrence: None)
  Receive Date: 20111018
  Receipt Date: 20110118
  Transmission Date: 20120403
  Serious: No
  Sender: FDA-Public Use
  Company Number: US-ASTRAZENECA-2011SE03466

PATIENT
  Age: 57 Year
  Sex: Female

DRUGS (2)
  1. NEXIUM [Suspect]
     Route: 048
  2. SYMBICORT [Suspect]
     Dosage: TOTAL DAILY DOSAGE AND FREQUENCY: UNKNOWN.
     Route: 055

REACTIONS (2)
  - OROPHARYNGEAL PAIN [None]
  - BRONCHITIS [None]
